FAERS Safety Report 5478165-2 (Version None)
Quarter: 2007Q4

REPORT INFORMATION
  Report Type: 
  Country: None (occurrence: None)
  Receive Date: 20071005
  Receipt Date: 20070208
  Transmission Date: 20080405
  Serious: No
  Sender: FDA-Public Use
  Company Number: US-BRISTOL-MYERS SQUIBB COMPANY-13673835

PATIENT
  Age: 76 Year
  Sex: Female
  Weight: 57 kg

DRUGS (6)
  1. AVAPRO [Suspect]
  2. LASIX [Concomitant]
  3. DIGITEK [Concomitant]
  4. COREG [Concomitant]
  5. WARFARIN SODIUM [Concomitant]
     Dates: start: 20010101
  6. FOLIC ACID [Concomitant]

REACTIONS (4)
  - ALOPECIA [None]
  - ANGINA PECTORIS [None]
  - CHEST PAIN [None]
  - PALPITATIONS [None]
